FAERS Safety Report 7789896-3 (Version None)
Quarter: 2011Q3

REPORT INFORMATION
  Report Type: 
  Country: None (occurrence: None)
  Receive Date: 20110930
  Receipt Date: 20101207
  Transmission Date: 20111222
  Serious: Yes (Other)
  Sender: FDA-Public Use
  Company Number: US-ASTRAZENECA-2010SE57846

PATIENT
  Age: 68 Year
  Sex: Female
  Weight: 56.7 kg

DRUGS (9)
  1. CALCIUM WITH VITAMIN D [Concomitant]
  2. TAMOXIFEN CITRATE [Suspect]
     Route: 048
  3. VITAMIN TAB [Concomitant]
  4. ARIMIDEX [Suspect]
     Indication: BREAST CANCER IN SITU
     Route: 048
     Dates: start: 20080101
  5. POTASSIUM [Concomitant]
  6. OMEPRAZOLE [Concomitant]
  7. LOSARTAN KCL AND HCTZ [Concomitant]
  8. AMBIEN [Concomitant]
     Indication: INSOMNIA
  9. XANAX [Concomitant]
     Indication: INSOMNIA

REACTIONS (5)
  - DEPRESSION [None]
  - ARTHRITIS [None]
  - NEOPLASM RECURRENCE [None]
  - MUSCULOSKELETAL STIFFNESS [None]
  - INSOMNIA [None]
